FAERS Safety Report 18267426 (Version 1)
Quarter: 2020Q3

REPORT INFORMATION
  Report Type: Spontaneous
  Country: DE (occurrence: DE)
  Receive Date: 20200915
  Receipt Date: 20200915
  Transmission Date: 20201103
  Serious: Yes (Other)
  Sender: FDA-Public Use
  Company Number: NVSC2020DE247682

PATIENT
  Sex: Female

DRUGS (3)
  1. ZIPRASIDON HEXAL [Suspect]
     Active Substance: ZIPRASIDONE HYDROCHLORIDE
     Dosage: 20 MG, UNKNOWN
     Route: 065
     Dates: start: 2015, end: 20200825
  2. ZIPRASIDON HEXAL [Suspect]
     Active Substance: ZIPRASIDONE HYDROCHLORIDE
     Dosage: 20 MG, QD (1?0?0)
     Route: 065
     Dates: start: 20200825
  3. ZIPRASIDON HEXAL [Suspect]
     Active Substance: ZIPRASIDONE HYDROCHLORIDE
     Indication: PRODUCT USED FOR UNKNOWN INDICATION
     Dosage: 40 MG, BID
     Route: 065
     Dates: start: 2015

REACTIONS (8)
  - Grimacing [Unknown]
  - Restlessness [Unknown]
  - Irritability [Unknown]
  - Tension [Unknown]
  - Nausea [Unknown]
  - Insomnia [Unknown]
  - Altered state of consciousness [Unknown]
  - Feeling abnormal [Unknown]

NARRATIVE: CASE EVENT DATE: 2020
